FAERS Safety Report 8349652-4 (Version None)
Quarter: 2012Q2

REPORT INFORMATION
  Report Type: 
  Country: None (occurrence: None)
  Receive Date: 20120510
  Receipt Date: 20120504
  Transmission Date: 20120825
  Serious: Yes (Other)
  Sender: FDA-Public Use
  Company Number: US-PFIZER INC-2012090134

PATIENT
  Sex: Female

DRUGS (2)
  1. CLARITIN [Concomitant]
     Indication: HYPERSENSITIVITY
     Dosage: 5 MG, UNK
  2. AROMASIN [Suspect]
     Indication: BREAST CANCER
     Dosage: 25 MG, 1X/DAY
     Route: 048
     Dates: start: 20100315

REACTIONS (3)
  - PARAESTHESIA [None]
  - COGNITIVE DISORDER [None]
  - EMOTIONAL DISORDER [None]
